FAERS Safety Report 4831911-0 (Version None)
Quarter: 2005Q4

REPORT INFORMATION
  Report Type: 
  Country: None (occurrence: None)
  Receive Date: 20051118
  Receipt Date: 20051013
  Transmission Date: 20060501
  Serious: Yes (Hospitalization)
  Sender: FDA-Public Use
  Company Number: US-ROCHE-421752

PATIENT
  Age: 30 Year
  Sex: Female

DRUGS (6)
  1. ACCUTANE [Suspect]
     Route: 065
     Dates: start: 19900925
  2. ACCUTANE [Suspect]
     Route: 065
     Dates: start: 19871221, end: 19880615
  3. ORAL CONTRACEPTION [Concomitant]
     Route: 048
     Dates: start: 19920615, end: 19940615
  4. CLOMID [Concomitant]
  5. PERGONAL [Concomitant]
  6. PRENATAL VITAMINS [Concomitant]

REACTIONS (5)
  - ABORTION SPONTANEOUS [None]
  - AMNIOTIC CAVITY DISORDER [None]
  - DRUG EXPOSURE DURING PREGNANCY [None]
  - HAEMATOMA [None]
  - HAEMORRHAGE [None]
